FAERS Safety Report 5710677-6 (Version None)
Quarter: 2008Q2

REPORT INFORMATION
  Report Type: 
  Country: None (occurrence: None)
  Receive Date: 20080420
  Receipt Date: 20080411
  Transmission Date: 20081010
  Serious: Yes (Hospitalization)
  Sender: FDA-Public Use
  Company Number: PHRM2008FR01166

PATIENT
  Age: 78 Year
  Sex: Male

DRUGS (7)
  1. DIGOXIN [Suspect]
     Indication: ATRIAL FIBRILLATION
     Dosage: UNK, UNK
     Route: 048
     Dates: start: 20071111, end: 20071125
  2. PREVISCAN [Suspect]
     Indication: ATRIAL FIBRILLATION
     Route: 048
     Dates: end: 20071125
  3. ZESTRIL [Concomitant]
  4. DIAMICRON [Concomitant]
  5. STAGID [Concomitant]
  6. INNOHEP [Concomitant]
     Indication: ATRIAL FIBRILLATION
     Dates: start: 20071111
  7. VOLTAREN [Suspect]
     Dosage: UNK, UNK
     Route: 048
     Dates: end: 20071103

REACTIONS (25)
  - ACUTE PULMONARY OEDEMA [None]
  - AORTIC VALVE INCOMPETENCE [None]
  - ATRIAL FIBRILLATION [None]
  - BLOOD ALBUMIN DECREASED [None]
  - BLOOD CALCIUM DECREASED [None]
  - BLOOD CREATININE INCREASED [None]
  - BLOOD UREA INCREASED [None]
  - CARDIAC MURMUR [None]
  - CARDIOMEGALY [None]
  - DIAPHRAGMATIC DISORDER [None]
  - DRUG RASH WITH EOSINOPHILIA AND SYSTEMIC SYMPTOMS [None]
  - EJECTION FRACTION DECREASED [None]
  - EOSINOPHILIA [None]
  - FACE OEDEMA [None]
  - HEART RATE IRREGULAR [None]
  - HYPERTROPHIC CARDIOMYOPATHY [None]
  - HYPOVITAMINOSIS [None]
  - LEFT ATRIAL DILATATION [None]
  - MITRAL VALVE SCLEROSIS [None]
  - OEDEMA PERIPHERAL [None]
  - PRURITUS [None]
  - PYREXIA [None]
  - RASH MACULO-PAPULAR [None]
  - RASH PUSTULAR [None]
  - TOXIC SKIN ERUPTION [None]
